FAERS Safety Report 6594180-X (Version None)
Quarter: 2010Q1

REPORT INFORMATION
  Report Type: 
  Country: None (occurrence: None)
  Receive Date: 20100222
  Receipt Date: 20100212
  Transmission Date: 20100710
  Serious: Yes (Other)
  Sender: FDA-Public Use
  Company Number: US-ROCHE-685545

PATIENT
  Sex: Male

DRUGS (3)
  1. INTERFERON ALFA [Suspect]
     Indication: HEPATITIS C
     Route: 065
     Dates: start: 19901101, end: 19910501
  2. PEGASYS [Suspect]
     Indication: HEPATITIS C
     Route: 065
     Dates: start: 20040918, end: 20050801
  3. RIBAVIRIN [Suspect]
     Indication: HEPATITIS C
     Route: 065
     Dates: start: 20040918, end: 20050801

REACTIONS (4)
  - DIABETES MELLITUS [None]
  - PROSTATIC DISORDER [None]
  - THYROID DISORDER [None]
  - VIRAL LOAD INCREASED [None]
